FAERS Safety Report 6051017-5 (Version None)
Quarter: 2009Q1

REPORT INFORMATION
  Report Type: 
  Country: None (occurrence: None)
  Receive Date: 20090126
  Receipt Date: 20081210
  Transmission Date: 20090719
  Serious: Yes (Other)
  Sender: FDA-Public Use
  Company Number: US-TYCO HEALTHCARE/MALLINCKRODT-T200802031

PATIENT

DRUGS (1)
  1. OPTIRAY 300 [Suspect]
     Indication: LUNG NEOPLASM
     Dosage: 100 ML, SINGLE
     Route: 042
     Dates: start: 20081201, end: 20081201

REACTIONS (1)
  - THROAT TIGHTNESS [None]
